FAERS Safety Report 4475637-4 (Version None)
Quarter: 2004Q4

REPORT INFORMATION
  Report Type: 
  Country: None (occurrence: None)
  Receive Date: 20041012
  Receipt Date: 20040914
  Transmission Date: 20050328
  Serious: Yes (Other)
  Sender: FDA-Public Use
  Company Number: ZANA001352

PATIENT
  Age: 18 Year
  Sex: Male

DRUGS (4)
  1. ZANAFLEX [Suspect]
     Dosage: 1 MG DAILY ORAL
     Route: 048
  2. BACLOFEN [Concomitant]
  3. HEPARIN [Concomitant]
  4. RISPERDAL [Concomitant]

REACTIONS (5)
  - AGITATION [None]
  - HEPATIC ENZYME INCREASED [None]
  - LIVER DISORDER [None]
  - PYREXIA [None]
  - RASH ERYTHEMATOUS [None]
